FAERS Safety Report 10019554 (Version 2)
Quarter: 2014Q2

REPORT INFORMATION
  Report Type: Spontaneous
  Country: US (occurrence: US)
  Receive Date: 20140318
  Receipt Date: 20140414
  Transmission Date: 20141212
  Serious: Yes (Other)
  Sender: FDA-Public Use
  Company Number: US-BAYER-2014-037744

PATIENT
  Age: 78 Year
  Sex: Female
  Weight: 70.75 kg

DRUGS (4)
  1. PHILLIPS^ MILK OF MAGNESIA LIQUID MINT [Suspect]
     Indication: CONSTIPATION
     Dosage: 1 DOSING CAP FULL EACH DAY
     Route: 048
     Dates: start: 201310
  2. MIRALAX [Concomitant]
  3. AMLODIPINE [Concomitant]
  4. LISINOPRIL [Concomitant]

REACTIONS (8)
  - Hypovitaminosis [None]
  - Drug dependence [None]
  - Skin haemorrhage [Recovered/Resolved]
  - Onychoclasis [Not Recovered/Not Resolved]
  - Nail growth abnormal [Not Recovered/Not Resolved]
  - Diarrhoea [Not Recovered/Not Resolved]
  - Flatulence [Not Recovered/Not Resolved]
  - Incorrect drug administration duration [None]
